FAERS Safety Report 8762528 (Version 1)
Quarter: 2012Q4

REPORT INFORMATION
  Report Type: 
  Country: US (occurrence: US)
  Receive Date: 20120829
  Receipt Date: 20120829
  Transmission Date: 20130627
  Serious: No
  Sender: FDA-Public Use
  Company Number: US-PFIZER INC-2012208784

PATIENT
  Age: 59 Year
  Sex: Female
  Weight: 122 kg

DRUGS (9)
  1. CADUET [Suspect]
     Dosage: [amlodipine besilate 10 mg]/ [atorvastatin calcium 40mg],daily
  2. NEURONTIN [Suspect]
     Dosage: 600 mg, 3x/day
  3. ACCUPRIL [Suspect]
     Dosage: 40 mg, daily
  4. VITAMIN D3 [Concomitant]
     Dosage: 1 DF, daily
     Route: 048
     Dates: start: 2012
  5. VITAMIN B12 [Concomitant]
     Dosage: UNK, as needed
  6. METFORMIN [Concomitant]
     Dosage: UNK
  7. METFORMIN [Concomitant]
     Dosage: 1000 mg, 2x/day
  8. NAPROXEN [Concomitant]
     Dosage: 500 mg, daily
     Route: 048
  9. NAPROXEN [Concomitant]
     Dosage: 500 mg, daily
     Route: 048

REACTIONS (4)
  - Inflammation [Not Recovered/Not Resolved]
  - Blood glucose fluctuation [Not Recovered/Not Resolved]
  - Headache [Not Recovered/Not Resolved]
  - Irritability [Not Recovered/Not Resolved]
